FAERS Safety Report 7343077-6 (Version None)
Quarter: 2011Q1

REPORT INFORMATION
  Report Type: 
  Country: None (occurrence: None)
  Receive Date: 20110301
  Receipt Date: 20110218
  Transmission Date: 20110831
  Serious: Yes (Hospitalization, Other)
  Sender: FDA-Public Use
  Company Number: 2011MA001676

PATIENT
  Sex: Male

DRUGS (3)
  1. OLANZAPNIE (OLANZAPINE) [Suspect]
     Dosage: TRPL
     Route: 064
  2. VENLAFAXINE HYDROCHLORIDE [Suspect]
     Dosage: TRPL
     Route: 064
  3. MIRTAZAPINE [Suspect]
     Dosage: TRPL
     Route: 064

REACTIONS (5)
  - FEEDING DISORDER NEONATAL [None]
  - RESTLESSNESS [None]
  - DRUG WITHDRAWAL SYNDROME NEONATAL [None]
  - SEPSIS NEONATAL [None]
  - MATERNAL DRUGS AFFECTING FOETUS [None]
